FAERS Safety Report 4274188-X (Version None)
Quarter: 2004Q1

REPORT INFORMATION
  Report Type: 
  Country: None (occurrence: None)
  Receive Date: 20040115
  Receipt Date: 20040109
  Transmission Date: 20041129
  Serious: Yes (Hospitalization)
  Sender: FDA-Public Use
  Company Number: TPA2004A00027

PATIENT
  Age: 75 Year
  Sex: Female

DRUGS (4)
  1. ACTOS [Suspect]
     Indication: DIABETES MELLITUS INSULIN-DEPENDENT
     Dosage: 30 MG, 1 IN 1 D, PER ORAL
     Route: 048
     Dates: start: 20000109
  2. HUMALOG (INSULIN LISPRO) (INJECTION FOR INFUSION) [Concomitant]
  3. ATENOLOL [Concomitant]
  4. THYROID MEDICATION (THYROID) [Concomitant]

REACTIONS (3)
  - DRUG INEFFECTIVE [None]
  - FALL [None]
  - HIP FRACTURE [None]
